FAERS Safety Report 4896913-7 (Version None)
Quarter: 2006Q1

REPORT INFORMATION
  Report Type: 
  Country: None (occurrence: None)
  Receive Date: 20060127
  Receipt Date: 20060117
  Transmission Date: 20060701
  Serious: Yes (Other)
  Sender: FDA-Public Use
  Company Number: 2006003894

PATIENT
  Age: 54 Year
  Sex: Male

DRUGS (1)
  1. SOMATROPIN (SOMATROPIN) [Suspect]
     Indication: GROWTH HORMONE DEFICIENCY
     Dosage: 0.3 MG (0.3 MG)

REACTIONS (2)
  - GERM CELL CANCER [None]
  - MALIGNANT NEOPLASM PROGRESSION [None]
